FAERS Safety Report 5745946-7 (Version None)
Quarter: 2008Q2

REPORT INFORMATION
  Report Type: 
  Country: None (occurrence: None)
  Receive Date: 20080520
  Receipt Date: 20080513
  Transmission Date: 20081010
  Serious: Yes (Disabling)
  Sender: FDA-Public Use
  Company Number: OSCN-PR-0805S-0257

PATIENT
  Sex: Female

DRUGS (2)
  1. OMNISCAN [Suspect]
     Indication: DRUG USE FOR UNKNOWN INDICATION
     Dosage: SINGLE DOSE,
     Dates: start: 20050518, end: 20050518
  2. GADOPENTETATE DIMEGLUMINE (MAGNEVIST) [Concomitant]

REACTIONS (2)
  - NEPHROGENIC SYSTEMIC FIBROSIS [None]
  - WHEELCHAIR USER [None]
